FAERS Safety Report 16331037 (Version 2)
Quarter: 2020Q2

REPORT INFORMATION
  Report Type: Report from Study
  Country: US (occurrence: US)
  Receive Date: 20190520
  Receipt Date: 20200513
  Transmission Date: 20200713
  Serious: No
  Sender: FDA-Public Use
  Company Number: US-ACADIA PHARMACEUTICALS INC.-ACA-2019-011880

PATIENT
  Age: 88 Year
  Sex: Male

DRUGS (1)
  1. NUPLAZID [Suspect]
     Active Substance: PIMAVANSERIN TARTRATE
     Indication: DELIRIUM
     Dosage: 34 MG, QD
     Route: 048
     Dates: start: 20181121

REACTIONS (3)
  - Off label use [Unknown]
  - Joint dislocation [Unknown]
  - Tympanic membrane perforation [Unknown]

NARRATIVE: CASE EVENT DATE: 20181121
